FAERS Safety Report 4948958-6 (Version None)
Quarter: 2006Q1

REPORT INFORMATION
  Report Type: 
  Country: None (occurrence: None)
  Receive Date: 20060315
  Receipt Date: 20060227
  Transmission Date: 20060701
  Serious: Yes (Death, Hospitalization, Other)
  Sender: FDA-Public Use
  Company Number: US200602004047

PATIENT
  Age: 42 Year
  Sex: Male
  Weight: 53.1 kg

DRUGS (4)
  1. ALIMTA [Suspect]
     Indication: SMALL CELL LUNG CANCER METASTATIC
     Dosage: 500 MG/M2,
     Dates: start: 20051005
  2. VITAMIN B12 [Concomitant]
  3. FOLIC ACID [Concomitant]
  4. DEXAMETHASONE [Concomitant]

REACTIONS (6)
  - ACUTE RESPIRATORY DISTRESS SYNDROME [None]
  - ANAEMIA [None]
  - BACTERIAL INFECTION [None]
  - FATIGUE [None]
  - NEUTROPENIA [None]
  - PLEURAL EFFUSION [None]
